FAERS Safety Report 17791633 (Version 1)
Quarter: 2020Q2

REPORT INFORMATION
  Report Type: Spontaneous
  Country: FR (occurrence: FR)
  Receive Date: 20200515
  Receipt Date: 20200515
  Transmission Date: 20200714
  Serious: Yes (Hospitalization)
  Sender: FDA-Public Use
  Company Number: FR-ACCORD-181886

PATIENT
  Age: 60 Year
  Sex: Female
  Weight: 55 kg

DRUGS (2)
  1. OXALIPLATIN. [Suspect]
     Active Substance: OXALIPLATIN
     Indication: CHOLANGIOCARCINOMA
     Dosage: 2ND TREATMENT ON 26/03
     Route: 042
     Dates: start: 20200326, end: 20200326
  2. GEMCITABINE. [Concomitant]
     Active Substance: GEMCITABINE
     Route: 042

REACTIONS (1)
  - Motor dysfunction [Recovered/Resolved]

NARRATIVE: CASE EVENT DATE: 20200326
